FAERS Safety Report 25869129 (Version 1)
Quarter: 2025Q4

REPORT INFORMATION
  Report Type: Spontaneous
  Country: MX (occurrence: MX)
  Receive Date: 20251001
  Receipt Date: 20251001
  Transmission Date: 20260118
  Serious: Yes (Other)
  Sender: ROCHE
  Company Number: MX-BoehringerIngelheim-2025-BI-097462

PATIENT
  Age: 72 Year
  Sex: Male

DRUGS (1)
  1. TENECTEPLASE [Suspect]
     Active Substance: TENECTEPLASE
     Indication: Fibrinolysis
     Route: 065

REACTIONS (2)
  - Chronic kidney disease [Recovered/Resolved]
  - Azotaemia [Unknown]
